FAERS Safety Report 7827633-4 (Version None)
Quarter: 2011Q4

REPORT INFORMATION
  Report Type: 
  Country: None (occurrence: None)
  Receive Date: 20111020
  Receipt Date: 20111020
  Transmission Date: 20120403
  Serious: Yes (Hospitalization)
  Sender: FDA-Public Use
  Company Number: US-ROCHE-1002632

PATIENT
  Sex: Female

DRUGS (4)
  1. LAPATINIB [Suspect]
     Indication: BREAST CANCER
     Route: 048
  2. HERCEPTIN [Suspect]
     Indication: BREAST CANCER
     Dosage: OVER 90 MINUTES
     Route: 042
  3. PACLITAXEL [Suspect]
     Indication: BREAST CANCER
     Dosage: GIVEN OVER 1 HOUR
     Route: 042
  4. HERCEPTIN [Suspect]
     Dosage: OVER 30 MIN

REACTIONS (6)
  - MUSCULOSKELETAL CHEST PAIN [None]
  - FATIGUE [None]
  - CHEST PAIN [None]
  - VAGINAL HAEMORRHAGE [None]
  - ANAEMIA [None]
  - URINARY TRACT INFECTION [None]
